FAERS Safety Report 9817696 (Version 3)
Quarter: 2014Q1

REPORT INFORMATION
  Report Type: Spontaneous
  Country: SE (occurrence: SE)
  Receive Date: 20140115
  Receipt Date: 20140224
  Transmission Date: 20141002
  Serious: Yes (Life-Threatening, Hospitalization)
  Sender: FDA-Public Use
  Company Number: SE-ELI_LILLY_AND_COMPANY-SE201401002747

PATIENT
  Age: 57 Year
  Sex: Female

DRUGS (1)
  1. ZYPADHERA [Suspect]
     Indication: SCHIZOPHRENIA
     Dosage: 405 MG, EVERY 4 WEEKS
     Route: 030
     Dates: start: 201208, end: 201401

REACTIONS (17)
  - Acute respiratory failure [Recovered/Resolved]
  - Hyperhidrosis [Recovered/Resolved]
  - Tardive dyskinesia [Recovered/Resolved]
  - Unresponsive to stimuli [Recovered/Resolved]
  - Myoglobin blood increased [Recovered/Resolved]
  - Skin warm [Recovered/Resolved]
  - Heart rate increased [Recovered/Resolved]
  - Psychomotor hyperactivity [Recovered/Resolved]
  - Akathisia [Recovered/Resolved]
  - Confusional state [Recovered/Resolved]
  - Sedation [Recovered/Resolved]
  - Blood pressure increased [Recovered/Resolved]
  - Fatigue [Recovered/Resolved]
  - Dysarthria [Recovered/Resolved]
  - Anxiety [Recovered/Resolved]
  - Urinary incontinence [Recovered/Resolved]
  - Somnolence [Recovered/Resolved]
